FAERS Safety Report 4575985-3 (Version None)
Quarter: 2005Q1

REPORT INFORMATION
  Report Type: 
  Country: None (occurrence: None)
  Receive Date: 20050209
  Receipt Date: 20041215
  Transmission Date: 20050727
  Serious: Yes (Death, Life-Threatening)
  Sender: FDA-Public Use
  Company Number: CA-SANOFI-SYNTHELABO-F01200403947

PATIENT
  Sex: Male

DRUGS (5)
  1. CLOPIDOGREL [Suspect]
     Dosage: 75 MG
     Route: 048
     Dates: start: 20040121, end: 20041028
  2. COMBIVENT [Concomitant]
     Dosage: UNK
     Route: 048
  3. PULMICORT [Concomitant]
     Dosage: UNK
     Route: 048
  4. MICARDIS [Concomitant]
  5. ASPIRIN [Concomitant]

REACTIONS (3)
  - CARDIAC TAMPONADE [None]
  - MYOCARDIAL INFARCTION [None]
  - PERICARDIAL EFFUSION [None]
